FAERS Safety Report 19941814 (Version 2)
Quarter: 2021Q4

REPORT INFORMATION
  Report Type: Report from Study
  Country: US (occurrence: US)
  Receive Date: 20211012
  Receipt Date: 20211020
  Transmission Date: 20220303
  Serious: Yes (Death, Hospitalization, Other)
  Sender: FDA-Public Use
  Company Number: US-ACTELION-A-NJ2020-200515

PATIENT
  Age: 60 Year
  Sex: Male

DRUGS (10)
  1. UPTRAVI [Suspect]
     Active Substance: SELEXIPAG
     Indication: Pulmonary arterial hypertension
     Route: 048
     Dates: start: 20190806, end: 20191203
  2. UPTRAVI [Suspect]
     Active Substance: SELEXIPAG
     Route: 048
  3. UPTRAVI [Suspect]
     Active Substance: SELEXIPAG
     Route: 048
     Dates: start: 20190807
  4. LETAIRIS [Concomitant]
     Active Substance: AMBRISENTAN
     Dosage: 10 MG, QD
  5. ASPIRIN [Concomitant]
     Active Substance: ASPIRIN
     Dosage: 81 MG, QD
  6. COREG [Concomitant]
     Active Substance: CARVEDILOL
     Dosage: UNK MG, BID
  7. LISINOPRIL [Concomitant]
     Active Substance: LISINOPRIL
     Dosage: 3 MG, QD
  8. XARELTO [Concomitant]
     Active Substance: RIVAROXABAN
  9. SPIRONOLACTONE [Concomitant]
     Active Substance: SPIRONOLACTONE
     Dosage: 25 MG, QD
  10. ELIQUIS [Concomitant]
     Active Substance: APIXABAN

REACTIONS (7)
  - Myocardial infarction [Fatal]
  - Ulcer haemorrhage [Unknown]
  - Iron deficiency anaemia [Recovered/Resolved]
  - Hypotension [Not Recovered/Not Resolved]
  - Dizziness [Unknown]
  - Heart rate increased [Not Recovered/Not Resolved]
  - Dyspnoea exertional [Not Recovered/Not Resolved]

NARRATIVE: CASE EVENT DATE: 20191201
